FAERS Safety Report 4387843-8 (Version None)
Quarter: 2004Q2

REPORT INFORMATION
  Report Type: 
  Country: None (occurrence: None)
  Receive Date: 20040623
  Receipt Date: 20040607
  Transmission Date: 20050107
  Serious: Yes (Death)
  Sender: FDA-Public Use
  Company Number: USA031050251

PATIENT
  Age: 79 Year
  Sex: Male
  Weight: 59 kg

DRUGS (9)
  1. FORTEO [Suspect]
     Indication: OSTEOPOROSIS
     Dosage: 20 UG/1 DAY
     Dates: start: 20030616
  2. CALCIUM WITH VITAMIN D [Concomitant]
  3. VITAMIN B COMPLEX CAP [Concomitant]
  4. FOLIC ACID [Concomitant]
  5. CALCIUM CARBONATE WITH MAGNESIUM [Concomitant]
  6. HYDROCODONE [Concomitant]
  7. DURAGESIC [Concomitant]
  8. WOODWARDS GRIPE WATER [Concomitant]
  9. EMETROL [Concomitant]

REACTIONS (4)
  - NAUSEA [None]
  - RESPIRATORY ARREST [None]
  - VOMITING [None]
  - WEIGHT DECREASED [None]
